FAERS Safety Report 19771644 (Version 2)
Quarter: 2022Q2

REPORT INFORMATION
  Report Type: Spontaneous
  Country: US (occurrence: US)
  Receive Date: 20210901
  Receipt Date: 20220502
  Transmission Date: 20220721
  Serious: Yes (Disabling)
  Sender: FDA-Public Use
  Company Number: US-PFIZER INC-2021245220

PATIENT
  Age: 65 Year

DRUGS (1)
  1. SKELAXIN [Suspect]
     Active Substance: METAXALONE
     Dosage: 800 MG

REACTIONS (3)
  - Blindness [Unknown]
  - Pain [Unknown]
  - Anxiety [Unknown]
